FAERS Safety Report 4439384-7 (Version None)
Quarter: 2004Q3

REPORT INFORMATION
  Report Type: 
  Country: None (occurrence: None)
  Receive Date: 20040728
  Receipt Date: 20040420
  Transmission Date: 20050211
  Serious: Yes (Hospitalization)
  Sender: FDA-Public Use
  Company Number: USA040465411

PATIENT
  Age: 14 Year
  Sex: Male
  Weight: 70 kg

DRUGS (5)
  1. ZYPREXA [Suspect]
     Indication: BIPOLAR DISORDER
     Dosage: 5 MG DAY
     Dates: start: 20031201, end: 20040319
  2. STRATTERA [Suspect]
     Indication: ATTENTION DEFICIT/HYPERACTIVITY DISORDER
     Dosage: 40 MG DAY
     Dates: start: 20040413, end: 20040416
  3. LEXAPRO [Concomitant]
  4. DEPAKOTE [Concomitant]
  5. GEODON [Concomitant]

REACTIONS (6)
  - ABNORMAL BEHAVIOUR [None]
  - DECREASED APPETITE [None]
  - SUICIDAL IDEATION [None]
  - TREMOR [None]
  - WEIGHT DECREASED [None]
  - WEIGHT INCREASED [None]
